FAERS Safety Report 13014172 (Version 2)
Quarter: 2016Q4

REPORT INFORMATION
  Report Type: Spontaneous
  Country: JP (occurrence: JP)
  Receive Date: 20161209
  Receipt Date: 20161223
  Transmission Date: 20170207
  Serious: Yes (Other)
  Sender: FDA-Public Use
  Company Number: JP-ASTRAZENECA-2016SF29599

PATIENT
  Age: 61 Year
  Sex: Female

DRUGS (4)
  1. NORVASC [Suspect]
     Active Substance: AMLODIPINE BESYLATE
     Route: 048
     Dates: start: 201409, end: 201509
  2. ECARD [Suspect]
     Active Substance: CANDESARTAN CILEXETIL\HYDROCHLOROTHIAZIDE
     Dosage: HIGH DOSE, DOSE UNKNOWN
     Route: 048
     Dates: start: 201409, end: 201509
  3. CRESTOR [Suspect]
     Active Substance: ROSUVASTATIN CALCIUM
     Indication: HYPERCHOLESTEROLAEMIA
     Route: 048
     Dates: start: 201409, end: 201510
  4. MAINTATE [Suspect]
     Active Substance: BISOPROLOL FUMARATE
     Route: 048
     Dates: start: 201409, end: 201509

REACTIONS (1)
  - Drug-induced liver injury [Unknown]

NARRATIVE: CASE EVENT DATE: 201509
